FAERS Safety Report 7483841-6 (Version None)
Quarter: 2011Q2

REPORT INFORMATION
  Report Type: 
  Country: None (occurrence: None)
  Receive Date: 20110517
  Receipt Date: 20110504
  Transmission Date: 20111010
  Serious: Yes (Hospitalization)
  Sender: FDA-Public Use
  Company Number: PHHY2011FR39135

PATIENT
  Age: 63 Year
  Sex: Female

DRUGS (2)
  1. ESIDRIX [Concomitant]
  2. RASILEZ HCT [Suspect]

REACTIONS (3)
  - VOMITING [None]
  - MALAISE [None]
  - HYPONATRAEMIA [None]
